FAERS Safety Report 5541237-8 (Version None)
Quarter: 2007Q4

REPORT INFORMATION
  Report Type: 
  Country: None (occurrence: None)
  Receive Date: 20071209
  Receipt Date: 20061219
  Transmission Date: 20080405
  Serious: No
  Sender: FDA-Public Use
  Company Number: US-AMGEN-KDL204343

PATIENT
  Sex: Male

DRUGS (1)
  1. ENBREL [Suspect]
     Indication: RHEUMATOID ARTHRITIS
     Route: 058
     Dates: start: 20041001

REACTIONS (6)
  - HEADACHE [None]
  - INJECTION SITE PAIN [None]
  - MYALGIA [None]
  - PYREXIA [None]
  - RESPIRATORY TRACT CONGESTION [None]
  - TINNITUS [None]
